FAERS Safety Report 24013175 (Version 1)
Quarter: 2024Q2

REPORT INFORMATION
  Report Type: Report from Study
  Country: US (occurrence: US)
  Receive Date: 20240626
  Receipt Date: 20240626
  Transmission Date: 20240716
  Serious: Yes (Hospitalization)
  Sender: FDA-Public Use
  Company Number: US-SA-SAC20240615000037

PATIENT
  Age: 77 Year
  Sex: Male

DRUGS (2)
  1. DUPILUMAB [Suspect]
     Active Substance: DUPILUMAB
     Indication: Dermatitis atopic
     Dosage: 600 MG, 1X
     Route: 058
     Dates: start: 20240606, end: 20240606
  2. LISINOPRIL [Concomitant]
     Active Substance: LISINOPRIL
     Dosage: UNK

REACTIONS (12)
  - Rash [Recovering/Resolving]
  - Blister [Recovering/Resolving]
  - Swelling [Unknown]
  - Swollen tongue [Unknown]
  - Pruritus [Recovering/Resolving]
  - Injection site rash [Recovering/Resolving]
  - Swelling face [Unknown]
  - Swelling of eyelid [Unknown]
  - Flushing [Recovering/Resolving]
  - Candida infection [Unknown]
  - Stomatitis [Unknown]
  - Glossodynia [Unknown]

NARRATIVE: CASE EVENT DATE: 20240601
